FAERS Safety Report 9715638 (Version 1)
Quarter: 2013Q4

REPORT INFORMATION
  Report Type: Spontaneous
  Country: US (occurrence: US)
  Receive Date: 20131127
  Receipt Date: 20131127
  Transmission Date: 20140711
  Serious: No
  Sender: FDA-Public Use
  Company Number: US-JNJFOC-20131106841

PATIENT
  Sex: Female
  Weight: 55.34 kg

DRUGS (15)
  1. DURAGESIC [Suspect]
     Indication: MIGRAINE
     Route: 062
  2. DURAGESIC [Suspect]
     Indication: MIGRAINE
     Route: 062
  3. DURAGESIC [Suspect]
     Indication: ARTHRALGIA
     Route: 062
  4. DURAGESIC [Suspect]
     Indication: ARTHRALGIA
     Route: 062
  5. DURAGESIC [Suspect]
     Indication: BACK PAIN
     Route: 062
  6. DURAGESIC [Suspect]
     Indication: BACK PAIN
     Route: 062
  7. XANAX [Concomitant]
     Indication: ANXIETY
     Route: 065
  8. KLONOPIN [Concomitant]
     Indication: SLEEP DISORDER THERAPY
     Route: 065
  9. LOPID [Concomitant]
     Indication: BLOOD CHOLESTEROL INCREASED
     Route: 065
  10. TRAZODONE [Concomitant]
     Indication: ANXIETY
     Route: 065
  11. TRAZODONE [Concomitant]
     Indication: SLEEP DISORDER THERAPY
     Route: 065
  12. ZOLOFT [Concomitant]
     Indication: BIPOLAR DISORDER
     Route: 065
  13. DEPAKOTE [Concomitant]
     Indication: MIGRAINE PROPHYLAXIS
     Route: 065
  14. METHADONE [Concomitant]
     Indication: PAIN
     Route: 065
  15. PROPRANOLOL [Concomitant]
     Indication: HYPERTENSION
     Route: 065

REACTIONS (5)
  - Drug ineffective [Not Recovered/Not Resolved]
  - Product adhesion issue [Unknown]
  - Breakthrough pain [Unknown]
  - Drug tolerance [Not Recovered/Not Resolved]
  - Wrong technique in drug usage process [Unknown]
